FAERS Safety Report 8263154-5 (Version None)
Quarter: 2012Q2

REPORT INFORMATION
  Report Type: 
  Country: None (occurrence: None)
  Receive Date: 20120405
  Receipt Date: 20120327
  Transmission Date: 20120825
  Serious: Yes (Hospitalization, Other)
  Sender: FDA-Public Use
  Company Number: US-ALEXION-A201200517

PATIENT
  Sex: Female

DRUGS (5)
  1. PLAVIX [Concomitant]
     Dosage: UNK
     Dates: end: 20120316
  2. COUMADIN [Concomitant]
     Dosage: UNK
     Dates: end: 20120316
  3. EPOGEN [Concomitant]
     Indication: RENAL FAILURE
     Dosage: UNK
  4. SOLIRIS [Suspect]
     Indication: PAROXYSMAL NOCTURNAL HAEMOGLOBINURIA
     Dosage: 600 MG, QW
     Route: 042
     Dates: start: 20090101
  5. SOLIRIS [Suspect]
     Dosage: 900 MG, Q2W
     Route: 042

REACTIONS (4)
  - BLOOD LACTATE DEHYDROGENASE INCREASED [None]
  - ANAEMIA [None]
  - DIVERTICULUM INTESTINAL HAEMORRHAGIC [None]
  - PNEUMONIA [None]
